FAERS Safety Report 8618469-5 (Version None)
Quarter: 2012Q3

REPORT INFORMATION
  Report Type: 
  Country: None (occurrence: None)
  Receive Date: 20120824
  Receipt Date: 20120808
  Transmission Date: 20120928
  Serious: Yes (Hospitalization, Other)
  Sender: FDA-Public Use
  Company Number: JP-009507513-2012SP029619

PATIENT

DRUGS (22)
  1. REBETOL [Suspect]
     Dosage: 400 MG, QD
     Route: 048
     Dates: start: 20120420
  2. BRANUTE [Concomitant]
     Indication: HYPOALBUMINAEMIA
     Dosage: CUMULATIVE DOSE: 212.85G; FORMULATION UNSPECIFIED: POR
     Route: 048
     Dates: start: 20120302, end: 20120328
  3. ALLEGRA [Concomitant]
     Indication: PROPHYLAXIS
     Dosage: UNSPECIFIED FORMULATION:POR
     Route: 048
  4. REBETOL [Suspect]
     Dosage: 400 MG, ONCE
     Route: 048
     Dates: start: 20120420, end: 20120511
  5. SELBEX [Concomitant]
     Indication: PROPHYLAXIS
     Dosage: UNSPECIFIED FORMULATION : POR
     Route: 048
     Dates: start: 20120207
  6. LOXOPROFEN [Concomitant]
     Indication: PROPHYLAXIS
     Dosage: FORMULATION UNSPECIFIED: POR
     Route: 048
     Dates: start: 20120207
  7. POSTERISAN [Concomitant]
     Indication: CONSTIPATION
     Dosage: DAILY DOSE UNKNOWN
     Route: 061
  8. REBETOL [Suspect]
     Indication: HEPATITIS C
     Dosage: 800 MG, QD
     Route: 048
     Dates: start: 20120113, end: 20120419
  9. POSTERISAN [Concomitant]
     Dosage: AS NEEDED
     Route: 061
  10. HEPARINOID [Concomitant]
     Indication: PROPHYLAXIS
     Dosage: PRN; DAILY DOSE UNKNOWN
     Route: 061
  11. FLURBIPROFEN [Concomitant]
     Dosage: AS NEEDED
     Route: 061
  12. BRANUTE [Concomitant]
     Route: 048
  13. PEG-INTRON [Suspect]
     Dosage: 1.2MCG/KG/WEEK
     Route: 058
     Dates: start: 20120323
  14. INCIVEK [Suspect]
     Indication: HEPATITIS C
     Route: 048
     Dates: start: 20120207, end: 20120430
  15. ANTIVIRAL (UNSPECIFIED) [Suspect]
     Indication: HEPATITIS C
     Dosage: 2250 MG, QD
     Route: 048
     Dates: start: 20120207, end: 20120430
  16. HIRUDOID [Concomitant]
     Indication: PROPHYLAXIS
     Dosage: AS NEEDED
     Route: 061
  17. LIVOSTIN [Concomitant]
     Indication: RHINITIS
     Dosage: FORMULATION UNSPECIFIED: NDR; DOSE: DAILY DOSE UNKNOWN, PRN.
     Route: 045
  18. PEG-INTRON [Suspect]
     Indication: HEPATITIS C
     Dosage: 1.5MCG/KG/WEEK
     Route: 058
     Dates: start: 20120113, end: 20120322
  19. PEG-INTRON [Suspect]
     Dosage: 1.5 MICROGRAM PER KILOGRAM, UNK
     Route: 058
     Dates: end: 20120504
  20. FLURBIPROFEN [Concomitant]
     Indication: PROPHYLAXIS
     Dosage: PRN; DAILY DOSE UNKNOWN; FORMULATION: TAP
     Route: 061
  21. LIVOSTIN [Concomitant]
     Dosage: AS NEEDED
     Route: 045
  22. ALLEGRA [Concomitant]
     Route: 048

REACTIONS (3)
  - HAEMOGLOBIN DECREASED [None]
  - HEPATIC FUNCTION ABNORMAL [None]
  - ERYTHEMA [None]
